FAERS Safety Report 10196893 (Version 2)
Quarter: 2014Q2

REPORT INFORMATION
  Report Type: Spontaneous
  Country: US (occurrence: US)
  Receive Date: 20140527
  Receipt Date: 20140605
  Transmission Date: 20141212
  Serious: Yes (Hospitalization, Other)
  Sender: FDA-Public Use
  Company Number: US-UCBSA-122082

PATIENT
  Age: 13 Year
  Sex: Male
  Weight: 31.7 kg

DRUGS (2)
  1. KEPPRA [Suspect]
     Dosage: 250 MG, ONCE DAILY (QD)
     Route: 048
     Dates: start: 20140306, end: 20140506
  2. DEPAKOTE [Concomitant]
     Indication: BENIGN ROLANDIC EPILEPSY
     Dosage: 375MG MORNING 625MG EVENING, 2 TIMES A DAY
     Route: 048
     Dates: start: 2007

REACTIONS (12)
  - Convulsion [Recovered/Resolved]
  - Dyspnoea [Recovered/Resolved]
  - Hallucination [Recovered/Resolved]
  - Nausea [Recovered/Resolved]
  - Diplopia [Recovered/Resolved]
  - Headache [Recovered/Resolved]
  - Aggression [Recovered/Resolved]
  - Panic attack [Recovered/Resolved]
  - Muscular weakness [Recovered/Resolved]
  - Musculoskeletal stiffness [Recovered/Resolved]
  - Regressive behaviour [Recovered/Resolved]
  - Conversion disorder [Unknown]
